FAERS Safety Report 15330188 (Version 1)
Quarter: 2018Q3

REPORT INFORMATION
  Report Type: Spontaneous
  Country: US (occurrence: US)
  Receive Date: 20180829
  Receipt Date: 20180829
  Transmission Date: 20181010
  Serious: Yes (Life-Threatening, Hospitalization)
  Sender: FDA-Public Use
  Company Number: US-JNJFOC-20180837759

PATIENT
  Age: 58 Year
  Sex: Male
  Weight: 99.9 kg

DRUGS (2)
  1. INVOKANA [Suspect]
     Active Substance: CANAGLIFLOZIN
     Indication: TYPE 2 DIABETES MELLITUS
     Route: 048
     Dates: start: 20140729
  2. INVOKAMET [Suspect]
     Active Substance: CANAGLIFLOZIN\METFORMIN HYDROCHLORIDE
     Indication: TYPE 2 DIABETES MELLITUS
     Route: 048

REACTIONS (7)
  - Limb amputation [Unknown]
  - Diabetic foot infection [Unknown]
  - Wound sepsis [Unknown]
  - Gangrene [Unknown]
  - Osteomyelitis [Unknown]
  - Postoperative wound complication [Unknown]
  - Diabetic foot [Unknown]

NARRATIVE: CASE EVENT DATE: 201511
